FAERS Safety Report 18234418 (Version 1)
Quarter: 2020Q3

REPORT INFORMATION
  Report Type: Spontaneous
  Country: CA (occurrence: CA)
  Receive Date: 20200904
  Receipt Date: 20200904
  Transmission Date: 20201103
  Serious: Yes (Death)
  Sender: FDA-Public Use
  Company Number: CA-ICU MEDICAL, INC.-ICU2020CA00065

PATIENT
  Age: 72 Year
  Sex: Male

DRUGS (2)
  1. PROTAMINE SULFATE. [Suspect]
     Active Substance: PROTAMINE SULFATE
     Indication: PROCOAGULANT THERAPY
     Route: 042
  2. POTASSIUM CHLORIDE IN DEXTROSE AND SODIUM CHLORIDE INJECTION [Suspect]
     Active Substance: DEXTROSE\DEXTROSE MONOHYDRATE\POTASSIUM CHLORIDE\SODIUM CHLORIDE
     Indication: HYPOKALAEMIA
     Route: 065

REACTIONS (13)
  - Circulatory collapse [Fatal]
  - Hypotension [Fatal]
  - Extracorporeal circulation [Fatal]
  - Pulseless electrical activity [Fatal]
  - Accidental overdose [Fatal]
  - Hypokalaemia [Fatal]
  - Resuscitation [Fatal]
  - Hypersensitivity [Fatal]
  - Cardiovascular insufficiency [Fatal]
  - Transfusion [Fatal]
  - Electrocardiogram QRS complex prolonged [Fatal]
  - Cardiogenic shock [Fatal]
  - Haemorrhage coronary artery [Fatal]
